FAERS Safety Report 5644024-5 (Version None)
Quarter: 2008Q1

REPORT INFORMATION
  Report Type: 
  Country: None (occurrence: None)
  Receive Date: 20080131
  Receipt Date: 20071220
  Transmission Date: 20080703
  Serious: Yes (Other)
  Sender: FDA-Public Use
  Company Number: 163-21880-07110965

PATIENT
  Age: 84 Year
  Sex: Male
  Weight: 69.8539 kg

DRUGS (2)
  1. REVLIMID [Suspect]
     Indication: MULTIPLE MYELOMA
     Dosage: 20 MG, EVERY DAY FOR 21 DAYS AND OFF 7 DAYS, ORAL
     Route: 048
     Dates: start: 20070201
  2. ASPIRIN [Concomitant]

REACTIONS (4)
  - ANAEMIA [None]
  - BLOOD COUNT ABNORMAL [None]
  - FATIGUE [None]
  - RENAL IMPAIRMENT [None]
